FAERS Safety Report 18798399 (Version 3)
Quarter: 2021Q1

REPORT INFORMATION
  Report Type: Spontaneous
  Country: JP (occurrence: JP)
  Receive Date: 20210128
  Receipt Date: 20210217
  Transmission Date: 20210419
  Serious: Yes (Other)
  Sender: FDA-Public Use
  Company Number: JP-ORION CORPORATION ORION PHARMA-ENTC2021-0022

PATIENT
  Age: 82 Year
  Sex: Male

DRUGS (1)
  1. STALEVO [Suspect]
     Active Substance: CARBIDOPA\ENTACAPONE\LEVODOPA
     Indication: PARKINSON^S DISEASE
     Dosage: STRENGTH: 100/10/100 MG
     Route: 048

REACTIONS (5)
  - Wrong technique in product usage process [Unknown]
  - Vomiting [Unknown]
  - Dysphagia [Recovered/Resolved]
  - Pneumonia aspiration [Unknown]
  - Dementia [Unknown]
